FAERS Safety Report 6083788-6 (Version None)
Quarter: 2009Q1

REPORT INFORMATION
  Report Type: 
  Country: None (occurrence: None)
  Receive Date: 20090219
  Receipt Date: 20090209
  Transmission Date: 20090719
  Serious: Yes (Other)
  Sender: FDA-Public Use
  Company Number: GB-PFIZER INC-2009167636

PATIENT

DRUGS (1)
  1. SOMAVERT [Suspect]
     Indication: ACROMEGALY

REACTIONS (1)
  - GOITRE [None]
